FAERS Safety Report 25094646 (Version 1)
Quarter: 2025Q1

REPORT INFORMATION
  Report Type: Spontaneous
  Country: US (occurrence: None)
  Receive Date: 20250318
  Receipt Date: 20250318
  Transmission Date: 20250409
  Serious: No
  Sender: FDA-CTU
  Company Number: None

PATIENT
  Age: 54 Year
  Sex: Female
  Weight: 72 kg

DRUGS (2)
  1. IVERMECTIN\NIACINAMIDE\OXYMETAZOLINE HYDROCHLORIDE [Suspect]
     Active Substance: IVERMECTIN\NIACINAMIDE\OXYMETAZOLINE HYDROCHLORIDE
     Indication: Rosacea
     Dosage: 30 GSM TWICE A DAY TOPICAL
     Route: 061
     Dates: start: 20240731, end: 20240903
  2. LEXAPRO [Concomitant]
     Active Substance: ESCITALOPRAM OXALATE

REACTIONS (2)
  - Skin burning sensation [None]
  - Thermal burn [None]

NARRATIVE: CASE EVENT DATE: 20240831
